FAERS Safety Report 5244996-7 (Version None)
Quarter: 2007Q1

REPORT INFORMATION
  Report Type: 
  Country: None (occurrence: None)
  Receive Date: 20070223
  Receipt Date: 20070212
  Transmission Date: 20070707
  Serious: Yes (Other)
  Sender: FDA-Public Use
  Company Number: PHBS2007US02690

PATIENT
  Age: 41 Year
  Sex: Female

DRUGS (5)
  1. OXCARBAZEPINE [Suspect]
     Indication: BIPOLAR I DISORDER
  2. ARIPIPRAZOLE [Suspect]
     Indication: BIPOLAR I DISORDER
     Dosage: 7.5 MG/DAY
  3. LAMOTRIGINE [Concomitant]
     Indication: BIPOLAR I DISORDER
  4. LITHIUM CARBONATE [Concomitant]
     Indication: BIPOLAR I DISORDER
  5. QUETIAPINE FUMARATE [Concomitant]
     Indication: BIPOLAR I DISORDER

REACTIONS (2)
  - AKATHISIA [None]
  - DEPRESSION [None]
